FAERS Safety Report 10235504 (Version 1)
Quarter: 2014Q2

REPORT INFORMATION
  Report Type: Report from Study
  Country: ES (occurrence: ES)
  Receive Date: 20140613
  Receipt Date: 20140613
  Transmission Date: 20141212
  Serious: Yes (Death)
  Sender: FDA-Public Use
  Company Number: ES-BAYER-2014-086651

PATIENT
  Age: 100 Year
  Sex: Female

DRUGS (1)
  1. ADIRO 100 MG COMPRIMIDOS GASTRORRESISTENTES EFG, 30 COMPRIMIDOS [Suspect]
     Indication: ANGINA PECTORIS
     Dosage: 100 MG, QD
     Route: 048
     Dates: start: 2014, end: 20140521

REACTIONS (3)
  - Cerebral haemorrhage [Fatal]
  - Hemiplegia [Fatal]
  - Coma [Fatal]
